FAERS Safety Report 10873231 (Version 1)
Quarter: 2015Q1

REPORT INFORMATION
  Report Type: Spontaneous
  Country: CA (occurrence: None)
  Receive Date: 20150223
  Receipt Date: 20150223
  Transmission Date: 20150721
  Serious: Yes (Other)
  Sender: FDA-Public Use
  Company Number: IPC201502-000100

PATIENT

DRUGS (1)
  1. PROPRANOLOL HYDROCHLORIDE (PROPRANOLOL HYDROCHLORIDE) (PROPRANOLOL HYDROCHLORIDE) [Suspect]
     Active Substance: PROPRANOLOL HYDROCHLORIDE
     Indication: INFANTILE HAEMANGIOMA
     Dosage: 0.5 MG/KG/DAY DIVIDED EVERY 8 H

REACTIONS (4)
  - Off label use [None]
  - Upper respiratory tract infection [None]
  - Seizure [None]
  - Hypoglycaemia [None]
